FAERS Safety Report 6645464-8 (Version None)
Quarter: 2010Q1

REPORT INFORMATION
  Report Type: 
  Country: None (occurrence: None)
  Receive Date: 20100322
  Receipt Date: 20100316
  Transmission Date: 20100710
  Serious: Yes (Life-Threatening, Hospitalization)
  Sender: FDA-Public Use
  Company Number: BR-ASTRAZENECA-2007UW26365

PATIENT
  Age: 55 Year
  Sex: Female
  Weight: 105 kg

DRUGS (13)
  1. SELOZOK [Suspect]
     Indication: HYPERTENSION
     Route: 048
     Dates: end: 20070501
  2. SELOZOK [Suspect]
     Route: 048
     Dates: start: 20070501
  3. SELOZOK [Suspect]
     Route: 048
  4. SELOKEN [Suspect]
     Route: 065
  5. AMIODARONA [Concomitant]
     Indication: HYPERTENSION
  6. CAPTOPRIL [Concomitant]
     Indication: HYPERTENSION
  7. AMILODOPINA [Concomitant]
  8. PRAVASTATINA [Concomitant]
     Indication: HYPERCHOLESTEROLAEMIA
  9. AAS [Concomitant]
  10. FUROSEMIDA [Concomitant]
  11. PARACETAMOL [Concomitant]
  12. DEPAQUENE [Concomitant]
  13. DIUREMIDA [Concomitant]

REACTIONS (5)
  - ABDOMINAL PAIN [None]
  - CHOLELITHIASIS [None]
  - DRUG DISPENSING ERROR [None]
  - MYOCARDIAL INFARCTION [None]
  - SYNCOPE [None]
